FAERS Safety Report 9387422 (Version 2)
Quarter: 2013Q3

REPORT INFORMATION
  Report Type: Spontaneous
  Country: US (occurrence: None)
  Receive Date: 20130702
  Receipt Date: 20130809
  Transmission Date: 20140515
  Serious: Yes (Hospitalization)
  Sender: FDA-Public Use
  Company Number: UTC-034801

PATIENT
  Age: 42 Year
  Sex: Female
  Weight: 75 kg

DRUGS (2)
  1. REMODULIN [Suspect]
     Indication: PULMONARY ARTERIAL HYPERTENSION
     Dosage: 103.68 UG/KG (0.072 UG/KG,L IN 1 MIN),SUBCUTANEOUS OF MIN)
     Route: 058
     Dates: start: 20110322
  2. TRACLEER (BOSENTAN) [Concomitant]

REACTIONS (3)
  - Abdominal distension [None]
  - Skin reaction [None]
  - Malabsorption from injection site [None]
